FAERS Safety Report 5868241-4 (Version None)
Quarter: 2008Q3

REPORT INFORMATION
  Report Type: 
  Country: None (occurrence: None)
  Receive Date: 20080902
  Receipt Date: 20080826
  Transmission Date: 20090109
  Serious: Yes (Hospitalization)
  Sender: FDA-Public Use
  Company Number: US-AMGEN-QUU303050

PATIENT
  Sex: Female
  Weight: 112.1 kg

DRUGS (14)
  1. ENBREL [Suspect]
     Indication: RHEUMATOID ARTHRITIS
     Route: 058
     Dates: end: 20080101
  2. ADVAIR DISKUS 100/50 [Concomitant]
  3. ZEGERID [Concomitant]
  4. DARVOCET-N 100 [Concomitant]
  5. VITAMIN E [Concomitant]
  6. MULTI-VITAMINS [Concomitant]
  7. COD-LIVER OIL [Concomitant]
  8. IRON [Concomitant]
  9. CALCIUM [Concomitant]
  10. SINGULAIR [Concomitant]
  11. OXYBUTYNIN [Concomitant]
  12. ALBUTEROL [Concomitant]
  13. MECLIZINE [Concomitant]
  14. VITAMIN B [Concomitant]

REACTIONS (1)
  - RHEUMATOID ARTHRITIS [None]
